FAERS Safety Report 5314399-5 (Version None)
Quarter: 2007Q1

REPORT INFORMATION
  Report Type: 
  Country: None (occurrence: None)
  Receive Date: 20070130
  Receipt Date: 20060210
  Transmission Date: 20070707
  Serious: Yes (Hospitalization)
  Sender: FDA-Public Use
  Company Number: 144243USA

PATIENT
  Age: 48 Year
  Sex: Female

DRUGS (6)
  1. COPAXONE [Suspect]
     Indication: MULTIPLE SCLEROSIS
     Dosage: (20 MG), SUBCUTANEOUS
     Route: 058
     Dates: start: 20040801, end: 20060130
  2. COPAXONE [Suspect]
     Indication: MULTIPLE SCLEROSIS
     Dosage: (20 MG), SUBCUTANEOUS
     Route: 058
     Dates: start: 20060102
  3. VICODIN [Concomitant]
  4. DIAZEPAM [Concomitant]
  5. INSULIN [Concomitant]
  6. BLOOD PRESSURE DRUG [Concomitant]

REACTIONS (2)
  - ARTHRALGIA [None]
  - SCIATICA [None]
